FAERS Safety Report 18512352 (Version 1)
Quarter: 2020Q4

REPORT INFORMATION
  Report Type: Spontaneous
  Country: US (occurrence: US)
  Receive Date: 20201117
  Receipt Date: 20201117
  Transmission Date: 20210114
  Serious: No
  Sender: FDA-Public Use
  Company Number: US-ELI_LILLY_AND_COMPANY-US202010008015

PATIENT
  Sex: Male

DRUGS (2)
  1. BASAGLAR [Suspect]
     Active Substance: INSULIN GLARGINE
     Dosage: 20 U, DAILY
     Route: 058
     Dates: start: 2017
  2. BASAGLAR [Suspect]
     Active Substance: INSULIN GLARGINE
     Indication: DIABETES MELLITUS
     Dosage: 24 U, DAILY
     Route: 058
     Dates: start: 2017

REACTIONS (7)
  - Pain [Unknown]
  - Accidental overdose [Unknown]
  - Dizziness [Unknown]
  - Back disorder [Unknown]
  - Visual impairment [Unknown]
  - Malaise [Unknown]
  - Illness [Unknown]
